FAERS Safety Report 9441462 (Version 1)
Quarter: 2013Q3

REPORT INFORMATION
  Report Type: Spontaneous
  Country: US (occurrence: US)
  Receive Date: 20130805
  Receipt Date: 20130805
  Transmission Date: 20140515
  Serious: No
  Sender: FDA-Public Use
  Company Number: US-009507513-1308USA001991

PATIENT
  Sex: Female

DRUGS (2)
  1. ZEGERID OTC CAPSULES [Suspect]
     Indication: DYSPEPSIA
     Dosage: UNK, QD
     Route: 048
  2. ZEGERID OTC CAPSULES [Suspect]
     Dosage: UNK, BID
     Route: 048
     Dates: start: 20130724

REACTIONS (3)
  - Muscle spasms [Unknown]
  - Overdose [Unknown]
  - Drug effect decreased [Unknown]
